FAERS Safety Report 4550238-8 (Version None)
Quarter: 2005Q1

REPORT INFORMATION
  Report Type: 
  Country: None (occurrence: None)
  Receive Date: 20050107
  Receipt Date: 20030210
  Transmission Date: 20050727
  Serious: Yes (Death)
  Sender: FDA-Public Use
  Company Number: 2003IM000175

PATIENT
  Age: 1 Year
  Sex: Male

DRUGS (1)
  1. ACTIMMUNE [Suspect]
     Indication: ILL-DEFINED DISORDER
     Dosage: 0.075 ML; TIW; SUBCUTANEOUS
     Route: 058
     Dates: start: 20021025, end: 20030108

REACTIONS (1)
  - DEATH [None]
